FAERS Safety Report 8326125 (Version 4)
Quarter: 2013Q2

REPORT INFORMATION
  Report Type: Spontaneous
  Country: US (occurrence: US)
  Receive Date: 20120106
  Receipt Date: 20130502
  Transmission Date: 20140414
  Serious: Yes (Other)
  Sender: FDA-Public Use
  Company Number: US-ASTRAZENECA-2011SE78861

PATIENT
  Age: 91 Year
  Sex: Male

DRUGS (2)
  1. NEXIUM [Suspect]
     Indication: GASTRIC ULCER
     Route: 048
  2. NEXIUM [Suspect]
     Indication: GASTRIC ULCER
     Route: 048

REACTIONS (10)
  - Cerebrovascular accident [Unknown]
  - Fall [Unknown]
  - Hip fracture [Unknown]
  - Hand fracture [Unknown]
  - Hand fracture [Unknown]
  - Barrett^s oesophagus [Unknown]
  - Parkinson^s disease [Unknown]
  - Oesophageal ulcer [Recovered/Resolved]
  - Off label use [Unknown]
  - Off label use [Unknown]
